FAERS Safety Report 9684738 (Version 2)
Quarter: 2013Q4

REPORT INFORMATION
  Report Type: Spontaneous
  Country: JP (occurrence: JP)
  Receive Date: 20131112
  Receipt Date: 20131127
  Transmission Date: 20140711
  Serious: Yes (Other)
  Sender: FDA-Public Use
  Company Number: PHHY2013JP126941

PATIENT
  Age: 26 Year
  Sex: Female

DRUGS (4)
  1. RIFAMPICIN SANDOZ [Suspect]
     Indication: PULMONARY TUBERCULOSIS
     Dosage: 450 MG, DAILY
     Route: 048
     Dates: start: 20130530
  2. ESANBUTOL [Suspect]
     Indication: PULMONARY TUBERCULOSIS
     Dosage: 750 MG, DAILY
     Route: 048
     Dates: start: 20130530
  3. ISCOTIN [Concomitant]
     Indication: PULMONARY TUBERCULOSIS
     Dosage: 400 MG, UNK
     Route: 048
  4. PYDOXAL [Concomitant]
     Indication: PULMONARY TUBERCULOSIS
     Dosage: 20 MG, TID
     Dates: start: 20130530

REACTIONS (2)
  - Melaena [Unknown]
  - Abdominal pain [Unknown]
